FAERS Safety Report 18147374 (Version 1)
Quarter: 2020Q3

REPORT INFORMATION
  Report Type: Spontaneous
  Country: BR (occurrence: BR)
  Receive Date: 20200814
  Receipt Date: 20200814
  Transmission Date: 20201103
  Serious: Yes (Other)
  Sender: FDA-Public Use
  Company Number: BR-JNJFOC-20200812897

PATIENT

DRUGS (2)
  1. PARACETAMOL [Suspect]
     Active Substance: ACETAMINOPHEN
     Indication: PROCEDURAL PAIN
     Route: 065
  2. PARACETAMOL WITH CODEINE PHOSPHATE [Suspect]
     Active Substance: ACETAMINOPHEN\CODEINE PHOSPHATE
     Indication: PROCEDURAL PAIN
     Route: 065

REACTIONS (11)
  - Somnolence [Unknown]
  - Vomiting [Unknown]
  - Muscular weakness [Unknown]
  - Respiratory depression [Unknown]
  - Constipation [Unknown]
  - Nausea [Unknown]
  - Pruritus [Unknown]
  - Arrhythmia [Unknown]
  - Dizziness [Unknown]
  - Hypotension [Unknown]
  - Euphoric mood [Unknown]
